FAERS Safety Report 8807847 (Version 1)
Quarter: 2012Q4

REPORT INFORMATION
  Report Type: Report from Study
  Country: IE (occurrence: IE)
  Receive Date: 20120925
  Receipt Date: 20120925
  Transmission Date: 20130627
  Serious: Yes (Other)
  Sender: FDA-Public Use
  Company Number: IE-GLAXOSMITHKLINE-B0823854A

PATIENT
  Sex: Female

DRUGS (1)
  1. TYVERB [Suspect]
     Indication: BREAST CANCER METASTATIC
     Dosage: 750MG per day
     Route: 048
     Dates: start: 20120801

REACTIONS (3)
  - Diarrhoea [Recovering/Resolving]
  - Pain in extremity [Unknown]
  - Eye pain [Unknown]
